FAERS Safety Report 8048296-1 (Version None)
Quarter: 2012Q1

REPORT INFORMATION
  Report Type: 
  Country: None (occurrence: None)
  Receive Date: 20120110
  Receipt Date: 20120103
  Transmission Date: 20120608
  Serious: Yes (Death)
  Sender: FDA-Public Use
  Company Number: DSA_48712_2012

PATIENT
  Sex: Female

DRUGS (7)
  1. EPIVIR [Concomitant]
  2. LANTUS [Concomitant]
  3. AMBIEN [Concomitant]
  4. ISENTRESS [Concomitant]
  5. KALETRA [Concomitant]
  6. DARVON COMPOUND [Concomitant]
  7. XENAZINE [Suspect]
     Indication: PRODUCT USED FOR UNKNOWN INDICATION
     Dosage: (TWO 12.5 MG TABLETS EACH MORNING ORAL)
     Route: 048
     Dates: end: 20111216

REACTIONS (1)
  - DEATH [None]
